FAERS Safety Report 8073476-9 (Version None)
Quarter: 2012Q1

REPORT INFORMATION
  Report Type: 
  Country: None (occurrence: None)
  Receive Date: 20120126
  Receipt Date: 20120126
  Transmission Date: 20120608
  Serious: Yes (Other)
  Sender: FDA-Public Use
  Company Number: None

PATIENT
  Age: 64 Year
  Sex: Female
  Weight: 90.718 kg

DRUGS (1)
  1. HYDROXYCHLOROQUINE SULFATE [Suspect]
     Indication: SYSTEMIC LUPUS ERYTHEMATOSUS
     Dosage: 200.0 MG
     Dates: start: 20100720, end: 20111120

REACTIONS (9)
  - NAUSEA [None]
  - ABDOMINAL PAIN UPPER [None]
  - CONDITION AGGRAVATED [None]
  - INFLUENZA LIKE ILLNESS [None]
  - RECTAL HAEMORRHAGE [None]
  - SYSTEMIC LUPUS ERYTHEMATOSUS [None]
  - NASOPHARYNGITIS [None]
  - DIARRHOEA [None]
  - PRODUCT SUBSTITUTION ISSUE [None]
